FAERS Safety Report 24413064 (Version 1)
Quarter: 2024Q4

REPORT INFORMATION
  Report Type: Spontaneous
  Country: US (occurrence: US)
  Receive Date: 20241008
  Receipt Date: 20241008
  Transmission Date: 20250115
  Serious: No
  Sender: SANOFI AVENTIS
  Company Number: US-SA-2024SA288064

PATIENT
  Age: 11 Year
  Sex: Female
  Weight: 52.27 kg

DRUGS (5)
  1. DUPIXENT [Suspect]
     Active Substance: DUPILUMAB
     Indication: Dermatitis atopic
     Dosage: 200 MG, QOW
     Route: 058
  2. COSENTYX [Concomitant]
     Active Substance: SECUKINUMAB
  3. MONTELUKAST [Concomitant]
     Active Substance: MONTELUKAST
  4. ONDANSETRON [Concomitant]
     Active Substance: ONDANSETRON
  5. CLOBETASOL PROPIONATE [Concomitant]
     Active Substance: CLOBETASOL PROPIONATE

REACTIONS (1)
  - Injection site rash [Recovered/Resolved]
